FAERS Safety Report 24981895 (Version 1)
Quarter: 2025Q1

REPORT INFORMATION
  Report Type: Spontaneous
  Country: CN (occurrence: CN)
  Receive Date: 20250218
  Receipt Date: 20250218
  Transmission Date: 20250409
  Serious: Yes (Life-Threatening, Hospitalization, Other)
  Sender: PFIZER
  Company Number: CN-PFIZER INC-202500018683

PATIENT
  Age: 61 Year
  Sex: Male
  Weight: 76 kg

DRUGS (5)
  1. METHOTREXATE SODIUM [Suspect]
     Active Substance: METHOTREXATE SODIUM
     Indication: Central nervous system lymphoma
     Dosage: 13 G, 1X/DAY
     Route: 041
     Dates: start: 20250101, end: 20250101
  2. SODIUM CHLORIDE [Suspect]
     Active Substance: SODIUM CHLORIDE
     Indication: Central nervous system lymphoma
     Dosage: 500 ML, 1X/DAY
     Route: 041
     Dates: start: 20250101, end: 20250101
  3. SODIUM BICARBONATE [Concomitant]
     Active Substance: SODIUM BICARBONATE
     Indication: Fluid replacement
     Dosage: 250 ML, 3X/DAY
     Route: 041
     Dates: start: 20250102, end: 20250104
  4. SODIUM BICARBONATE [Concomitant]
     Active Substance: SODIUM BICARBONATE
     Indication: Urine alkalinisation therapy
  5. LEUCOVORIN CALCIUM [Concomitant]
     Active Substance: LEUCOVORIN CALCIUM
     Indication: Therapeutic procedure
     Dosage: 15 MG, 4X/DAY
     Route: 041
     Dates: start: 20250102, end: 20250104

REACTIONS (1)
  - Toxicity to various agents [Recovering/Resolving]

NARRATIVE: CASE EVENT DATE: 20250102
